FAERS Safety Report 13342755 (Version 3)
Quarter: 2017Q3

REPORT INFORMATION
  Report Type: Report from Study
  Country: US (occurrence: US)
  Receive Date: 20170316
  Receipt Date: 20170927
  Transmission Date: 20171127
  Serious: Yes (Hospitalization)
  Sender: FDA-Public Use
  Company Number: US-EISAI MEDICAL RESEARCH-EC-2017-023795

PATIENT
  Age: 59 Year
  Sex: Female

DRUGS (12)
  1. LENVIMA [Suspect]
     Active Substance: LENVATINIB
     Route: 048
     Dates: start: 201705, end: 2017
  2. LENVIMA [Suspect]
     Active Substance: LENVATINIB
     Route: 048
     Dates: start: 2017
  3. CARVEDILOL. [Concomitant]
     Active Substance: CARVEDILOL
  4. LOSARTAN. [Concomitant]
     Active Substance: LOSARTAN
  5. LENVIMA [Suspect]
     Active Substance: LENVATINIB
     Route: 048
     Dates: start: 201703, end: 201705
  6. SYNTHROID [Concomitant]
     Active Substance: LEVOTHYROXINE SODIUM
  7. LENVIMA [Suspect]
     Active Substance: LENVATINIB
     Indication: THYROID CANCER
     Route: 048
     Dates: start: 20161230, end: 20170106
  8. XYLOCAINE [Concomitant]
     Active Substance: LIDOCAINE HYDROCHLORIDE
  9. LENVIMA [Suspect]
     Active Substance: LENVATINIB
     Route: 048
     Dates: start: 20170111, end: 201703
  10. REGLAN [Concomitant]
     Active Substance: METOCLOPRAMIDE HYDROCHLORIDE
  11. ONDANSETRON [Concomitant]
     Active Substance: ONDANSETRON
  12. ULORIC [Concomitant]
     Active Substance: FEBUXOSTAT

REACTIONS (14)
  - Headache [Not Recovered/Not Resolved]
  - Dysphagia [Recovered/Resolved]
  - Asthenia [Not Recovered/Not Resolved]
  - Blood magnesium decreased [Recovered/Resolved]
  - Nausea [Not Recovered/Not Resolved]
  - Stomatitis [Recovered/Resolved]
  - Fatigue [Recovered/Resolved]
  - Vomiting [Recovered/Resolved]
  - Blood calcium decreased [Recovered/Resolved]
  - Blood potassium decreased [Recovered/Resolved]
  - Decreased appetite [Not Recovered/Not Resolved]
  - Dehydration [Recovered/Resolved]
  - Hypertension [Not Recovered/Not Resolved]
  - Saliva altered [Recovered/Resolved]

NARRATIVE: CASE EVENT DATE: 201612
